FAERS Safety Report 7584000-9 (Version None)
Quarter: 2011Q2

REPORT INFORMATION
  Report Type: 
  Country: None (occurrence: None)
  Receive Date: 20110628
  Receipt Date: 20110628
  Transmission Date: 20111010
  Serious: Yes (Other)
  Sender: FDA-Public Use
  Company Number: None

PATIENT
  Sex: Female
  Weight: 64.8644 kg

DRUGS (6)
  1. LORAZEPAM [Concomitant]
  2. HALOPERIDOL [Concomitant]
  3. HALOPERIDOL DECANOATE [Concomitant]
  4. SERTRALINE HYDROCHLORIDE 100MG TABLET MANUFACTURER: CAMBER PHARMACY [Suspect]
     Indication: DEPRESSION
     Dosage: 100MG DAILY ONCE DAILY P.O.
     Route: 048
     Dates: start: 20100101
  5. SERTRALINE HYDROCHLORIDE 100MG TABLET MANUFACTURER: CAMBER PHARMACY [Suspect]
     Indication: POST-TRAUMATIC STRESS DISORDER
     Dosage: 100MG DAILY ONCE DAILY P.O.
     Route: 048
     Dates: start: 20100101
  6. BENZTROPINE MESYLATE [Concomitant]

REACTIONS (1)
  - PSORIASIS [None]
